FAERS Safety Report 6348618-3 (Version None)
Quarter: 2009Q3

REPORT INFORMATION
  Report Type: 
  Country: None (occurrence: None)
  Receive Date: 20090911
  Receipt Date: 20090831
  Transmission Date: 20100115
  Serious: Yes (Hospitalization)
  Sender: FDA-Public Use
  Company Number: CA-JNJFOC-20090900419

PATIENT
  Sex: Female
  Weight: 103 kg

DRUGS (6)
  1. REMICADE [Suspect]
     Route: 042
     Dates: start: 20080901, end: 20090603
  2. REMICADE [Suspect]
     Indication: RHEUMATOID ARTHRITIS
     Route: 042
     Dates: start: 20080901, end: 20090603
  3. OXYCET [Concomitant]
  4. FENTANYL TRANSDERMAL SYSTEM [Concomitant]
  5. MEDROL [Concomitant]
  6. IRON [Concomitant]

REACTIONS (3)
  - HYPOTENSION [None]
  - PYREXIA [None]
  - RESPIRATORY FAILURE [None]
